FAERS Safety Report 17894630 (Version 1)
Quarter: 2020Q2

REPORT INFORMATION
  Report Type: Spontaneous
  Country: KR (occurrence: KR)
  Receive Date: 20200615
  Receipt Date: 20200615
  Transmission Date: 20200714
  Serious: Yes (Other)
  Sender: FDA-Public Use
  Company Number: KR-NVP-000004

PATIENT
  Age: 4 Year

DRUGS (2)
  1. VALGANCICLOVIR. [Suspect]
     Active Substance: VALGANCICLOVIR
     Indication: ACTIVATED PI3 KINASE DELTA SYNDROME
     Route: 048
  2. SIROLIMUS. [Suspect]
     Active Substance: SIROLIMUS
     Indication: ACTIVATED PI3 KINASE DELTA SYNDROME
     Dosage: 2 MG (3.0 MG/M2
     Route: 065

REACTIONS (3)
  - Neutropenia [Recovering/Resolving]
  - Drug effective for unapproved indication [Unknown]
  - Stomatitis [Recovering/Resolving]
